FAERS Safety Report 9107617 (Version 1)
Quarter: 2013Q1

REPORT INFORMATION
  Report Type: Report from Study
  Country: CR (occurrence: CR)
  Receive Date: 20130221
  Receipt Date: 20130221
  Transmission Date: 20140127
  Serious: Yes (Death)
  Sender: FDA-Public Use
  Company Number: CR-ROCHE-1193325

PATIENT
  Age: 93 None
  Sex: Female

DRUGS (2)
  1. BONVIVA [Suspect]
     Indication: OSTEOPOROSIS
     Route: 048
     Dates: start: 20091103, end: 20121201
  2. NATRILIX [Concomitant]
     Indication: HYPERTENSION

REACTIONS (1)
  - Pneumonia [Fatal]
